FAERS Safety Report 5720921-7 (Version None)
Quarter: 2008Q2

REPORT INFORMATION
  Report Type: 
  Country: None (occurrence: None)
  Receive Date: 20080423
  Receipt Date: 20071001
  Transmission Date: 20081010
  Serious: Yes (Other)
  Sender: FDA-Public Use
  Company Number: 248780

PATIENT
  Age: 60 Year
  Sex: Female

DRUGS (2)
  1. AVASTIN [Suspect]
     Indication: OVARIAN CANCER
     Dosage: Q3W, INTRAVENOUS
     Route: 042
  2. TAXOTERE [Concomitant]

REACTIONS (3)
  - DEAFNESS [None]
  - DYSPHAGIA [None]
  - THROMBOSIS [None]
